FAERS Safety Report 5556916-6 (Version None)
Quarter: 2007Q4

REPORT INFORMATION
  Report Type: 
  Country: None (occurrence: None)
  Receive Date: 20071214
  Receipt Date: 20071203
  Transmission Date: 20080405
  Serious: Yes (Death, Hospitalization, Other)
  Sender: FDA-Public Use
  Company Number: PHBS2007HK20323

PATIENT
  Age: 49 Year
  Sex: Male

DRUGS (3)
  1. CYCLOSPORINE [Suspect]
     Indication: RENAL TRANSPLANT
     Dosage: 125 MG/DAY
     Route: 065
     Dates: start: 19960101
  2. AZATHIOPRINE [Suspect]
     Indication: RENAL TRANSPLANT
     Dosage: 75 MG/DAY
     Route: 065
     Dates: start: 19960101
  3. PREDNISOLONE [Suspect]
     Indication: RENAL TRANSPLANT
     Dosage: 5 MG/DAY
     Route: 065
     Dates: start: 19960101

REACTIONS (23)
  - ANAEMIA [None]
  - ANASTOMOTIC LEAK [None]
  - ASCITES [None]
  - BLOOD CREATININE INCREASED [None]
  - COMPLICATIONS OF TRANSPLANTED KIDNEY [None]
  - DISEASE RECURRENCE [None]
  - DUODENITIS [None]
  - GASTRITIS [None]
  - GLOMERULONEPHRITIS PROLIFERATIVE [None]
  - HAEMODIALYSIS [None]
  - HAEMOGLOBIN DECREASED [None]
  - ILEAL ULCER [None]
  - ILEITIS [None]
  - INTESTINAL MASS [None]
  - INTESTINAL RESECTION [None]
  - LAPAROTOMY [None]
  - MELAENA [None]
  - MULTI-ORGAN FAILURE [None]
  - RECTAL HAEMORRHAGE [None]
  - SEPSIS [None]
  - SMALL INTESTINAL HAEMORRHAGE [None]
  - TUBERCULOSIS GASTROINTESTINAL [None]
  - UPPER GASTROINTESTINAL HAEMORRHAGE [None]
